FAERS Safety Report 6443147-0 (Version None)
Quarter: 2009Q4

REPORT INFORMATION
  Report Type: 
  Country: None (occurrence: None)
  Receive Date: 20091117
  Receipt Date: 20091110
  Transmission Date: 20100525
  Serious: Yes (Hospitalization)
  Sender: FDA-Public Use
  Company Number: A0817122A

PATIENT
  Age: 74 Year
  Sex: Male

DRUGS (1)
  1. AVANDIA [Suspect]
     Dosage: 10MG PER DAY
     Route: 065
     Dates: start: 20030217, end: 20060529

REACTIONS (1)
  - MYOCARDIAL INFARCTION [None]
